FAERS Safety Report 7108472-9 (Version None)
Quarter: 2010Q4

REPORT INFORMATION
  Report Type: 
  Country: None (occurrence: None)
  Receive Date: 20101117
  Receipt Date: 20101112
  Transmission Date: 20110411
  Serious: Yes (Hospitalization)
  Sender: FDA-Public Use
  Company Number: FR-BRISTOL-MYERS SQUIBB COMPANY-15384845

PATIENT
  Age: 67 Year
  Sex: Female

DRUGS (7)
  1. TAXOL [Suspect]
     Indication: BREAST CANCER
     Route: 042
     Dates: start: 20100819
  2. CYCLOPHOSPHAMIDE [Suspect]
     Dosage: ALSO ADMINISTERED ON 17-JUN-2010, 08-JUL-2010 AND 29-JUL-2010
     Dates: start: 20100527
  3. KYTRIL [Suspect]
     Indication: BREAST CANCER
     Dates: start: 20100819
  4. EPIRUBICIN [Suspect]
     Dosage: ALSO ADMINISTERED ON 17-JUN-2010, 08-JUL-2010 AND 29-JUL-2010
     Dates: start: 20100527
  5. RANITIDINE [Concomitant]
     Route: 042
     Dates: start: 20100819
  6. POLARAMINE [Concomitant]
     Dates: start: 20100819
  7. DEXAMETHASONE [Concomitant]
     Dates: start: 20100819

REACTIONS (6)
  - ACUTE CORONARY SYNDROME [None]
  - CHEST PAIN [None]
  - DEEP VEIN THROMBOSIS [None]
  - FALL [None]
  - PRESYNCOPE [None]
  - PULMONARY EMBOLISM [None]
